FAERS Safety Report 14616342 (Version 12)
Quarter: 2024Q2

REPORT INFORMATION
  Report Type: Spontaneous
  Country: US (occurrence: US)
  Receive Date: 20180309
  Receipt Date: 20240618
  Transmission Date: 20240716
  Serious: No
  Sender: FDA-Public Use
  Company Number: US-PFIZER INC-2018096140

PATIENT
  Age: 82 Year
  Sex: Female

DRUGS (16)
  1. METHOTREXATE SODIUM [Suspect]
     Active Substance: METHOTREXATE SODIUM
     Indication: Rheumatoid arthritis
     Dosage: UNK
     Dates: start: 2004
  2. ACETYLCYSTEINE [Concomitant]
     Active Substance: ACETYLCYSTEINE
  3. VITAMIN C [Concomitant]
     Active Substance: ASCORBIC ACID
  4. ASPIRIN [Concomitant]
     Active Substance: ASPIRIN
  5. CALCIUM [Concomitant]
     Active Substance: CALCIUM
  6. VITAMIN B12 [Concomitant]
     Active Substance: CYANOCOBALAMIN
  7. LACTOBACILLUS [LACTOBACILLUS ACIDOPHILUS] [Concomitant]
  8. LUTEIN [Concomitant]
     Active Substance: LUTEIN
  9. MAGNESIUM [Concomitant]
     Active Substance: MAGNESIUM
  10. FISH OIL [Concomitant]
     Active Substance: FISH OIL
  11. GLYCOLIC ACID [Concomitant]
     Active Substance: GLYCOLIC ACID
  12. POTASSIUM [Concomitant]
     Active Substance: POTASSIUM
  13. HERBALS\TURMERIC [Concomitant]
     Active Substance: HERBALS\TURMERIC
  14. VITAMIN D3 [Concomitant]
     Active Substance: CHOLECALCIFEROL
  15. ZEAXANTHIN [Concomitant]
     Active Substance: ZEAXANTHIN
  16. ZINC [Concomitant]
     Active Substance: PYRITHIONE ZINC\ZINC\ZINC CHLORIDE

REACTIONS (2)
  - Drug hypersensitivity [Unknown]
  - Alopecia [Unknown]
